FAERS Safety Report 10580161 (Version 1)
Quarter: 2014Q4

REPORT INFORMATION
  Report Type: Report from Study
  Country: US (occurrence: US)
  Receive Date: 20141112
  Receipt Date: 20141112
  Transmission Date: 20150529
  Serious: Yes (Hospitalization, Other)
  Sender: FDA-Public Use
  Company Number: US-GLAXOSMITHKLINE-US2014011806

PATIENT
  Age: 24 Year
  Sex: Female
  Weight: 74.4 kg

DRUGS (1)
  1. BELIMUMAB SOLUTION FOR INJECTION [Suspect]
     Active Substance: BELIMUMAB
     Indication: SYSTEMIC LUPUS ERYTHEMATOSUS
     Dosage: 200 MG, WE
     Dates: start: 20141002

REACTIONS (5)
  - Clitoris abscess [None]
  - Postoperative abscess [Recovering/Resolving]
  - Bacterial infection [None]
  - Lymphocyte count decreased [None]
  - White blood cell count decreased [None]

NARRATIVE: CASE EVENT DATE: 20141021
